FAERS Safety Report 23276686 (Version 1)
Quarter: 2023Q4

REPORT INFORMATION
  Report Type: Spontaneous
  Country: US (occurrence: None)
  Receive Date: 20231206
  Receipt Date: 20231206
  Transmission Date: 20240110
  Serious: Yes (Hospitalization, Other)
  Sender: FDA-Public Use
  Company Number: None

PATIENT
  Age: 34 Year
  Sex: Male
  Weight: 97.3 kg

DRUGS (2)
  1. LITHIUM [Suspect]
     Active Substance: LITHIUM
     Indication: Bipolar disorder
     Dosage: 600 MG DAILY ORAL
     Route: 048
     Dates: start: 20231018, end: 20231117
  2. SUCCINYLCHOLINE [Suspect]
     Active Substance: SUCCINYLCHOLINE
     Indication: General anaesthesia
     Dosage: 140 MG
     Route: 040
     Dates: start: 20231106, end: 20231117

REACTIONS (10)
  - Abnormal dreams [None]
  - Asthenia [None]
  - Speech disorder [None]
  - Tremor [None]
  - Autonomic nervous system imbalance [None]
  - Delirium [None]
  - Amnesia [None]
  - Disturbance in attention [None]
  - Drug interaction [None]
  - Therapy cessation [None]

NARRATIVE: CASE EVENT DATE: 20231117
